FAERS Safety Report 16255380 (Version 1)
Quarter: 2020Q3

REPORT INFORMATION
  Report Type: Spontaneous
  Country: ES (occurrence: ES)
  Receive Date: 20190430
  Receipt Date: 20190430
  Transmission Date: 20201104
  Serious: Yes (Hospitalization)
  Sender: FDA-Public Use
  Company Number: ES-TEVA-2019-ES-1043637

PATIENT
  Age: 5 Decade
  Sex: Male

DRUGS (18)
  1. OMALIZUMAB. [Suspect]
     Active Substance: OMALIZUMAB
     Indication: ASTHMA
     Route: 065
  2. SALMETEROL/FLUTICASONE [Suspect]
     Active Substance: FLUTICASONE PROPIONATE\SALMETEROL XINAFOATE
     Indication: ASTHMA
  3. FORMOTEROL/FLUTICASONE [Suspect]
     Active Substance: FLUTICASONE PROPIONATE\FORMOTEROL FUMARATE
     Indication: ASTHMA
     Dosage: TWO PUFFS (CONTAINING FORMOTEROL/FLUTICASONE PROPIONATE 320 MIGROG/9 MICROG) TWICE DAILY
     Route: 055
     Dates: start: 201608
  4. LEBRIKIZUMAB. [Suspect]
     Active Substance: LEBRIKIZUMAB
     Indication: ASTHMA
     Route: 065
     Dates: start: 201503, end: 201608
  5. METRONIDAZOLE. [Concomitant]
     Active Substance: METRONIDAZOLE
     Indication: BLASTOCYSTIS INFECTION
     Route: 065
  6. MONTELUKAST [Suspect]
     Active Substance: MONTELUKAST SODIUM
     Indication: ASTHMA
  7. PREDNISONE. [Suspect]
     Active Substance: PREDNISONE
     Indication: ASTHMA
     Dosage: 5?10 MG EVERY 24 HOURS
     Route: 048
     Dates: start: 201503
  8. PREDNISONE. [Suspect]
     Active Substance: PREDNISONE
     Indication: ASTHMA
     Dosage: 10?30 MG EVERY 24 HOURS
     Route: 048
     Dates: start: 201711
  9. FORMOTEROL/FLUTICASONE [Suspect]
     Active Substance: FLUTICASONE PROPIONATE\FORMOTEROL FUMARATE
     Indication: ASTHMA
  10. LEBRIKIZUMAB. [Suspect]
     Active Substance: LEBRIKIZUMAB
     Indication: ASTHMA
  11. PREDNISONE. [Suspect]
     Active Substance: PREDNISONE
     Indication: ASTHMA
     Dosage: 5?10 MG DAILY
     Route: 048
  12. TIOTROPIUM [Suspect]
     Active Substance: TIOTROPIUM
     Indication: ASTHMA
  13. SALMETEROL/FLUTICASONE [Suspect]
     Active Substance: FLUTICASONE PROPIONATE\SALMETEROL XINAFOATE
     Indication: ASTHMA
     Dosage: TWO PUFFS (CONTAINING SALMETEROL/FLUTICASONE PROPIONATE 22/250) TWICE DAILY
     Route: 055
     Dates: start: 201403
  14. TIOTROPIUM [Suspect]
     Active Substance: TIOTROPIUM
     Indication: ASTHMA
     Route: 065
     Dates: start: 201403
  15. MONTELUKAST [Suspect]
     Active Substance: MONTELUKAST SODIUM
     Indication: ASTHMA
     Dosage: 10 MILLIGRAM DAILY;
     Route: 065
     Dates: start: 201403
  16. PREDNISONE. [Suspect]
     Active Substance: PREDNISONE
     Indication: ASTHMA
     Route: 048
     Dates: start: 201403
  17. PREDNISONE. [Suspect]
     Active Substance: PREDNISONE
     Indication: ASTHMA
  18. PREDNISONE. [Suspect]
     Active Substance: PREDNISONE
     Indication: ASTHMA
     Dosage: 5?30 MG EVERY 24 HOURS
     Route: 048
     Dates: start: 201608

REACTIONS (1)
  - Treatment failure [Unknown]
